FAERS Safety Report 13017373 (Version 1)
Quarter: 2016Q4

REPORT INFORMATION
  Report Type: Spontaneous
  Country: US (occurrence: US)
  Receive Date: 20161210
  Receipt Date: 20161210
  Transmission Date: 20170207
  Serious: Yes (Death, Hospitalization, Disabling, Other)
  Sender: FDA-Public Use
  Company Number: None

PATIENT
  Age: 54 Year
  Sex: Male

DRUGS (1)
  1. PROZAC [Suspect]
     Active Substance: FLUOXETINE HYDROCHLORIDE
     Indication: DEPRESSION
     Dosage: ?          OTHER FREQUENCY:SEE DESCRIPTION;OTHER ROUTE:IN COMBINATION WITH OTHER DRUGS?
     Dates: start: 20151123, end: 20151203

REACTIONS (3)
  - Homicide [None]
  - Psychotic disorder [None]
  - Aggression [None]

NARRATIVE: CASE EVENT DATE: 20151203
